FAERS Safety Report 7887004-1 (Version None)
Quarter: 2011Q4

REPORT INFORMATION
  Report Type: 
  Country: None (occurrence: None)
  Receive Date: 20111102
  Receipt Date: 20110713
  Transmission Date: 20120403
  Serious: No
  Sender: FDA-Public Use
  Company Number: US-AMGEN-USASP2011035699

PATIENT
  Age: 47 Year
  Sex: Female
  Weight: 72.562 kg

DRUGS (1)
  1. ENBREL [Suspect]
     Indication: RHEUMATOID ARTHRITIS
     Dosage: 50 MG, QWK
     Route: 058
     Dates: start: 20110610

REACTIONS (4)
  - OEDEMA PERIPHERAL [None]
  - INJECTION SITE REACTION [None]
  - INJECTION SITE ERYTHEMA [None]
  - INJECTION SITE SWELLING [None]
